FAERS Safety Report 7179382-6 (Version None)
Quarter: 2010Q4

REPORT INFORMATION
  Report Type: 
  Country: None (occurrence: None)
  Receive Date: 20101221
  Receipt Date: 20101213
  Transmission Date: 20110411
  Serious: Yes (Other)
  Sender: FDA-Public Use
  Company Number: US-US-EMD SERONO, INC.-232604J09USA

PATIENT
  Sex: Female
  Weight: 102 kg

DRUGS (7)
  1. REBIF [Suspect]
     Indication: MULTIPLE SCLEROSIS
     Dates: start: 20090721, end: 20090101
  2. REBIF [Suspect]
     Route: 058
     Dates: start: 20090101, end: 20090101
  3. REBIF [Suspect]
     Route: 058
     Dates: start: 20090101, end: 20091101
  4. XANAX [Concomitant]
     Indication: PANIC ATTACK
  5. SYNTHROID [Concomitant]
     Indication: HYPOTHYROIDISM
     Route: 065
     Dates: end: 20090101
  6. SYNTHROID [Concomitant]
  7. ACYCLOVIR SODIUM [Concomitant]
     Indication: GENITAL HERPES

REACTIONS (7)
  - AGGRESSION [None]
  - DEPRESSED MOOD [None]
  - HALLUCINATION, AUDITORY [None]
  - HALLUCINATION, VISUAL [None]
  - HOMICIDAL IDEATION [None]
  - MENSTRUAL DISORDER [None]
  - THYROID FUNCTION TEST ABNORMAL [None]
